FAERS Safety Report 25591790 (Version 1)
Quarter: 2025Q3

REPORT INFORMATION
  Report Type: Spontaneous
  Country: US (occurrence: None)
  Receive Date: 20250720
  Receipt Date: 20250720
  Transmission Date: 20251020
  Serious: Yes (Hospitalization)
  Sender: FDA-CTU
  Company Number: None

PATIENT
  Age: 45 Year
  Sex: Female
  Weight: 68.9 kg

DRUGS (1)
  1. MOUNJARO [Suspect]
     Active Substance: TIRZEPATIDE
     Dates: start: 20250711, end: 20250715

REACTIONS (3)
  - Drug dose titration not performed [None]
  - Incorrect dose administered [None]
  - Injury [None]

NARRATIVE: CASE EVENT DATE: 20250720
